FAERS Safety Report 21846382 (Version 1)
Quarter: 2023Q1

REPORT INFORMATION
  Report Type: Report from Study
  Country: BR (occurrence: BR)
  Receive Date: 20230111
  Receipt Date: 20230111
  Transmission Date: 20230418
  Serious: Yes (Other)
  Sender: FDA-Public Use
  Company Number: BR-CELLTRION INC.-2023BR000141

PATIENT

DRUGS (12)
  1. TRUXIMA [Suspect]
     Active Substance: RITUXIMAB-ABBS
     Indication: Vasculitis
     Dosage: 2 AMPOLES EVERY 6 MONTHS, ROUTE OF ADMINISTRATION: ENDOVENOUS
     Route: 042
     Dates: start: 20221208
  2. TRUXIMA [Suspect]
     Active Substance: RITUXIMAB-ABBS
     Dosage: 2 AMPOULES EVERY 6 MONTHS
     Route: 042
     Dates: start: 20221221
  3. FOLIC ACID [Concomitant]
     Active Substance: FOLIC ACID
     Indication: Disability
     Dosage: 1 PILL PER DAY
     Route: 048
     Dates: start: 2022
  4. CALCIUM CARBONATE [Concomitant]
     Active Substance: CALCIUM CARBONATE
     Indication: Disability
     Dosage: 1 PILL PER DAY
     Route: 048
     Dates: start: 2022
  5. CALCIUM PANTOTHENATE\CYANOCOBALAMIN\NIACINAMIDE\PYRIDOXINE HYDROCHLORI [Concomitant]
     Active Substance: CALCIUM PANTOTHENATE\CYANOCOBALAMIN\NIACINAMIDE\PYRIDOXINE HYDROCHLORIDE\RIBOFLAVIN\THIAMINE MONONIT
     Indication: Disability
     Dosage: 2 PILLS PER DAY
     Route: 048
     Dates: start: 2022
  6. ALENDRONATE SODIUM [Concomitant]
     Active Substance: ALENDRONATE SODIUM
     Indication: Disability
     Dosage: 2 PILLS PER WEEK
     Route: 048
     Dates: start: 2021
  7. SPIRONOLACTONE [Concomitant]
     Active Substance: SPIRONOLACTONE
     Dosage: 2 PILLS PER DAY
     Route: 048
     Dates: start: 2022
  8. OMEPRAZOLE [Concomitant]
     Active Substance: OMEPRAZOLE
     Dosage: 2 PILLS PER DAY
     Route: 048
     Dates: start: 2020
  9. PREDNISONE [Concomitant]
     Active Substance: PREDNISONE
     Indication: Vasculitis
     Dosage: 1 PILL PER DAY
     Route: 048
     Dates: start: 2022
  10. SIMVASTATIN [Concomitant]
     Active Substance: SIMVASTATIN
     Dosage: 1 PILL PER DAY
     Route: 048
     Dates: start: 2020
  11. FERROUS SULFATE [Concomitant]
     Active Substance: FERROUS SULFATE
     Indication: Hypovitaminosis
     Dosage: 2 PILLS PER DAY
     Route: 048
     Dates: start: 2022
  12. Rivaroxabana [Concomitant]
     Indication: Thrombosis
     Dosage: 1 PILL PER DAY START: 2 MONTHS AGO
     Route: 048

REACTIONS (8)
  - Abdominal pain [Not Recovered/Not Resolved]
  - Abdominal distension [Not Recovered/Not Resolved]
  - Chest pain [Not Recovered/Not Resolved]
  - Condition aggravated [Not Recovered/Not Resolved]
  - Poor quality sleep [Not Recovered/Not Resolved]
  - Dyspnoea [Not Recovered/Not Resolved]
  - Cough [Not Recovered/Not Resolved]
  - Off label use [Unknown]

NARRATIVE: CASE EVENT DATE: 20221209
